FAERS Safety Report 17657324 (Version 2)
Quarter: 2020Q2

REPORT INFORMATION
  Report Type: Spontaneous
  Country: GB (occurrence: GB)
  Receive Date: 20200410
  Receipt Date: 20200415
  Transmission Date: 20200713
  Serious: Yes (Other)
  Sender: FDA-Public Use
  Company Number: GB-JNJFOC-20200403251

PATIENT
  Age: 33 Year
  Sex: Male
  Weight: 106 kg

DRUGS (3)
  1. IXEKIZUMAB [Concomitant]
     Active Substance: IXEKIZUMAB
     Indication: PSORIASIS
     Dates: start: 2019
  2. STELARA [Suspect]
     Active Substance: USTEKINUMAB
     Indication: PSORIASIS
     Route: 058
     Dates: start: 2018, end: 2019
  3. METHOTREXATE. [Suspect]
     Active Substance: METHOTREXATE
     Indication: PSORIASIS
     Route: 065
     Dates: start: 2015, end: 2019

REACTIONS (7)
  - Tenosynovitis [Unknown]
  - Arthropathy [Unknown]
  - Hepatic fibrosis [Unknown]
  - Synovitis [Unknown]
  - Drug ineffective [Unknown]
  - Dactylitis [Unknown]
  - Arthralgia [Unknown]
